FAERS Safety Report 16105734 (Version 2)
Quarter: 2020Q2

REPORT INFORMATION
  Report Type: Spontaneous
  Country: US (occurrence: US)
  Receive Date: 20190322
  Receipt Date: 20200512
  Transmission Date: 20200713
  Serious: No
  Sender: FDA-Public Use
  Company Number: US-TEVA-2019-US-1024592

PATIENT
  Sex: Female

DRUGS (8)
  1. JUNEL [Suspect]
     Active Substance: ETHINYL ESTRADIOL\NORETHINDRONE ACETATE
     Indication: WEIGHT CONTROL
     Dosage: FORM STRENGTH: NORETHINDRONE ACETATE 1 MG AND ETHINYL ESTRADIOL 20 MCG
     Route: 065
     Dates: start: 201705, end: 201705
  2. FLU CORTISONE [Concomitant]
  3. ALBUTEROL. [Concomitant]
     Active Substance: ALBUTEROL
  4. JUNEL [Suspect]
     Active Substance: ETHINYL ESTRADIOL\NORETHINDRONE ACETATE
     Indication: MENSTRUAL DISORDER
     Dates: start: 201705, end: 201705
  5. WIXELA INHUB [Concomitant]
     Active Substance: FLUTICASONE PROPIONATE\SALMETEROL XINAFOATE
  6. EPIDUO [Concomitant]
     Active Substance: ADAPALENE\BENZOYL PEROXIDE
  7. MELATONIN [Concomitant]
     Active Substance: MELATONIN
  8. METOPROLOL. [Concomitant]
     Active Substance: METOPROLOL

REACTIONS (6)
  - Paraesthesia oral [Recovered/Resolved]
  - Feeling abnormal [Recovered/Resolved]
  - Dizziness [Unknown]
  - Drug ineffective [Unknown]
  - Product use in unapproved indication [Unknown]
  - Hypoaesthesia [Recovered/Resolved]

NARRATIVE: CASE EVENT DATE: 2017
